FAERS Safety Report 9753873 (Version 1)
Quarter: 2013Q4

REPORT INFORMATION
  Report Type: Spontaneous
  Country: US (occurrence: US)
  Receive Date: 20131213
  Receipt Date: 20131213
  Transmission Date: 20140711
  Serious: No
  Sender: FDA-Public Use
  Company Number: US-GILEAD-2010-0027752

PATIENT
  Age: 81 Year
  Sex: Female

DRUGS (15)
  1. LETAIRIS [Suspect]
     Indication: PULMONARY ARTERIAL HYPERTENSION
     Route: 048
     Dates: start: 20090914
  2. SINGULAIR [Concomitant]
  3. ALDACTONE [Concomitant]
  4. LASIX [Concomitant]
  5. BENTYL [Concomitant]
  6. ZYRTEC [Concomitant]
  7. PROBENECID [Concomitant]
  8. SYMBICORT [Concomitant]
  9. HYDROXYZ [Concomitant]
  10. ALLOPURINOL [Concomitant]
  11. ERYTHROM [Concomitant]
  12. XOPENEX [Concomitant]
  13. IRON [Concomitant]
  14. ALIGN [Concomitant]
  15. NITROGLYCERIN [Concomitant]

REACTIONS (1)
  - Headache [Not Recovered/Not Resolved]
